FAERS Safety Report 23827274 (Version 2)
Quarter: 2024Q2

REPORT INFORMATION
  Report Type: Spontaneous
  Country: TR (occurrence: TR)
  Receive Date: 20240507
  Receipt Date: 20240509
  Transmission Date: 20240716
  Serious: Yes (Life-Threatening, Hospitalization, Other)
  Sender: FDA-Public Use
  Company Number: TR-MLMSERVICE-20240425-PI037931-00329-1

PATIENT
  Age: 16 Year
  Sex: Female

DRUGS (7)
  1. VANCOMYCIN [Suspect]
     Active Substance: VANCOMYCIN
     Indication: Pelvic fluid collection
     Dosage: UNK (22 DAYS)
  2. COLISTIN [Concomitant]
     Active Substance: COLISTIN
     Indication: Pelvic fluid collection
     Dosage: UNK (10 DAYS)
  3. AMIKACIN [Concomitant]
     Active Substance: AMIKACIN
     Indication: Pelvic fluid collection
     Dosage: UNK (19 DAYS)
  4. PANTOPRAZOLE [Concomitant]
     Active Substance: PANTOPRAZOLE
     Dosage: UNK
  5. FLUCONAZOLE [Concomitant]
     Active Substance: FLUCONAZOLE
     Indication: Pelvic fluid collection
     Dosage: UNK (15 DAYS)
  6. METRONIDAZOLE [Concomitant]
     Active Substance: METRONIDAZOLE
     Indication: Pelvic fluid collection
     Dosage: UNK (22 DAYS)
  7. MEROPENEM [Concomitant]
     Active Substance: MEROPENEM
     Indication: Pelvic fluid collection
     Dosage: UNK (15 DAYS)

REACTIONS (3)
  - Drug reaction with eosinophilia and systemic symptoms [Recovered/Resolved]
  - Aspartate aminotransferase increased [Recovering/Resolving]
  - Alanine aminotransferase increased [Recovering/Resolving]
